FAERS Safety Report 9512114 (Version 1)
Quarter: 2013Q3

REPORT INFORMATION
  Report Type: Spontaneous
  Country: GB (occurrence: None)
  Receive Date: 20130906
  Receipt Date: 20130906
  Transmission Date: 20140515
  Serious: Yes (Other)
  Sender: FDA-Public Use
  Company Number: AUR-APL-2013-07275

PATIENT
  Age: 64 Year
  Sex: Male

DRUGS (4)
  1. LISINOPRIL [Suspect]
     Indication: HYPERTENSION
     Dosage: (2.5 MG), ORAL
     Dates: start: 20130814, end: 20130814
  2. ASPIRIN (ACETYLSALICYLIC ACID) [Concomitant]
  3. BENDROFLUMETHIAZIDE (BENDROFLUMETHIAZIDE) [Concomitant]
  4. PRAVASTATIN (PRAVASTATIN) [Concomitant]

REACTIONS (5)
  - Pain in extremity [None]
  - Gait disturbance [None]
  - Muscular weakness [None]
  - Pain in extremity [None]
  - Pain in extremity [None]
